FAERS Safety Report 9794842 (Version 1)
Quarter: 2014Q1

REPORT INFORMATION
  Report Type: Spontaneous
  Country: DE (occurrence: DE)
  Receive Date: 20140102
  Receipt Date: 20140102
  Transmission Date: 20141002
  Serious: Yes (Hospitalization, Other)
  Sender: FDA-Public Use
  Company Number: DE-MYLANLABS-2013S1028631

PATIENT
  Sex: Male
  Weight: 3.2 kg

DRUGS (5)
  1. AMITRIPTYLIN [Suspect]
     Dosage: 75 [MG/D ]
     Route: 064
  2. NALOXONE HYDROCHLORIDE W/TILIDINE HYDROCHLO. [Suspect]
     Dosage: 8 [MG/D ] / 100 [MG/D ]
     Route: 064
  3. FEMIBION /01597501/ [Concomitant]
     Indication: PROPHYLAXIS OF NEURAL TUBE DEFECT
     Route: 064
  4. CLAVERSAL [Concomitant]
     Route: 064
  5. MCP /00041901/ [Concomitant]
     Route: 064

REACTIONS (3)
  - Exposure during pregnancy [Recovered/Resolved]
  - Myoclonus [Recovering/Resolving]
  - Congenital choroid plexus cyst [Unknown]
